FAERS Safety Report 26066382 (Version 1)
Quarter: 2025Q4

REPORT INFORMATION
  Report Type: Spontaneous
  Country: US (occurrence: US)
  Receive Date: 20251119
  Receipt Date: 20251119
  Transmission Date: 20260118
  Serious: No
  Sender: NOVO NORDISK
  Company Number: US-NOVOPROD-1308488

PATIENT
  Age: 76 Year
  Sex: Female

DRUGS (1)
  1. NOVOLOG [Suspect]
     Active Substance: INSULIN ASPART
     Indication: Type 1 diabetes mellitus
     Dosage: 18 U, QD
     Route: 058
     Dates: start: 2023

REACTIONS (5)
  - Vision blurred [Not Recovered/Not Resolved]
  - Musculoskeletal discomfort [Unknown]
  - Trigger finger [Unknown]
  - Glycosylated haemoglobin increased [Unknown]
  - Glycosylated haemoglobin decreased [Unknown]

NARRATIVE: CASE EVENT DATE: 20241028
